FAERS Safety Report 9248541 (Version 1)
Quarter: 2013Q1

REPORT INFORMATION
  Report Type: Spontaneous
  Country: US (occurrence: None)
  Receive Date: 20130305
  Receipt Date: 20130305
  Transmission Date: 20140127
  Serious: Yes (Other)
  Sender: FDA-Public Use
  Company Number: 163-21880-12091656 (0)

PATIENT
  Age: 90 Year
  Sex: Male

DRUGS (7)
  1. REVLIMID [Suspect]
     Indication: 5Q MINUS SYNDROME
     Dosage: 28 IN 28 D.
     Route: 048
     Dates: start: 20120823, end: 20120906
  2. NORVASC (AMLODIPINE BESILATE) [Concomitant]
  3. ATENOLOL (ATENOLOL) [Concomitant]
  4. FOSAMAX (ALENDRONATE SODIUIM) [Concomitant]
  5. TYLENOL EXTRA STRENGTH (PARACETAMOL) [Concomitant]
  6. ZOCOR (SIMVASTATIN) [Concomitant]
  7. NEUTROGENA [Concomitant]

REACTIONS (1)
  - Nasopharyngitis [None]
